FAERS Safety Report 4776649-3 (Version None)
Quarter: 2005Q3

REPORT INFORMATION
  Report Type: 
  Country: None (occurrence: None)
  Receive Date: 20050921
  Receipt Date: 20050913
  Transmission Date: 20060218
  Serious: Yes (Life-Threatening, Other)
  Sender: FDA-Public Use
  Company Number: 200513547BCC

PATIENT
  Sex: Female

DRUGS (8)
  1. ASPIRIN [Suspect]
     Indication: ARTHRITIS
     Dosage: SEE IMAGE
     Route: 048
  2. ASPIRIN [Suspect]
     Indication: CARDIAC OPERATION
     Dosage: SEE IMAGE
     Route: 048
  3. ASPIRIN [Suspect]
     Indication: ARTHRITIS
     Dosage: SEE IMAGE
     Route: 048
     Dates: start: 19810101
  4. ASPIRIN [Suspect]
     Indication: CARDIAC OPERATION
     Dosage: SEE IMAGE
     Route: 048
     Dates: start: 19810101
  5. ATACAND [Concomitant]
  6. PROTONIX [Concomitant]
  7. METOPROLOL [Concomitant]
  8. HYDROCHLOROTHIAZIDE [Concomitant]

REACTIONS (7)
  - CEREBROVASCULAR ACCIDENT [None]
  - CORONARY ARTERY OCCLUSION [None]
  - DYSPHAGIA [None]
  - HEMIPLEGIA [None]
  - HIP FRACTURE [None]
  - POST PROCEDURAL HAEMORRHAGE [None]
  - QUADRUPLE VESSEL BYPASS GRAFT [None]
